FAERS Safety Report 25006931 (Version 2)
Quarter: 2025Q1

REPORT INFORMATION
  Report Type: Report from Study
  Country: US (occurrence: US)
  Receive Date: 20250225
  Receipt Date: 20250318
  Transmission Date: 20250409
  Serious: Yes (Hospitalization, Other)
  Sender: EXELIXIS
  Company Number: US-EXELIXIS-EXL-2025-004179

PATIENT
  Age: 14 Year
  Sex: Male

DRUGS (26)
  1. CABOMETYX [Suspect]
     Active Substance: CABOZANTINIB S-MALATE
     Indication: Osteosarcoma metastatic
     Dosage: 60 MG, QD
     Route: 048
     Dates: start: 20240601
  2. CABOMETYX [Suspect]
     Active Substance: CABOZANTINIB S-MALATE
     Indication: Metastases to lung
     Dosage: 60 MG, QD
     Route: 048
     Dates: start: 20240629
  3. CABOMETYX [Suspect]
     Active Substance: CABOZANTINIB S-MALATE
     Dosage: 60 MG, QD
     Route: 048
     Dates: start: 202407
  4. CABOMETYX [Suspect]
     Active Substance: CABOZANTINIB S-MALATE
     Route: 048
     Dates: start: 20240727
  5. CABOMETYX [Suspect]
     Active Substance: CABOZANTINIB S-MALATE
     Route: 048
     Dates: start: 20240824, end: 20240925
  6. CABOMETYX [Suspect]
     Active Substance: CABOZANTINIB S-MALATE
     Route: 048
     Dates: start: 20241005
  7. CABOMETYX [Suspect]
     Active Substance: CABOZANTINIB S-MALATE
     Route: 048
     Dates: start: 20241019
  8. CABOMETYX [Suspect]
     Active Substance: CABOZANTINIB S-MALATE
     Route: 048
     Dates: start: 20241116
  9. CABOMETYX [Suspect]
     Active Substance: CABOZANTINIB S-MALATE
     Route: 048
     Dates: start: 20241214, end: 20241218
  10. CABOMETYX [Suspect]
     Active Substance: CABOZANTINIB S-MALATE
     Route: 048
     Dates: start: 20241230
  11. CABOMETYX [Suspect]
     Active Substance: CABOZANTINIB S-MALATE
     Route: 048
     Dates: start: 20250111, end: 20250125
  12. VITAMIN D [Concomitant]
     Active Substance: VITAMIN D NOS
  13. PERIACTIN [Concomitant]
     Active Substance: CYPROHEPTADINE HYDROCHLORIDE
  14. CELEBREX [Concomitant]
     Active Substance: CELECOXIB
  15. VITAMIN D3 [Concomitant]
     Active Substance: CHOLECALCIFEROL
  16. TEMOVATE [Concomitant]
     Active Substance: CLOBETASOL PROPIONATE
  17. PEPCID [Concomitant]
     Active Substance: FAMOTIDINE
  18. NEURONTIN [Concomitant]
     Active Substance: GABAPENTIN
  19. ADVIL [Concomitant]
     Active Substance: IBUPROFEN
     Indication: Pain
  20. XYLOCAINE [Concomitant]
     Active Substance: LIDOCAINE HYDROCHLORIDE
  21. EMLA [Concomitant]
     Active Substance: LIDOCAINE\PRILOCAINE
  22. NARCAN [Concomitant]
     Active Substance: NALOXONE HYDROCHLORIDE
  23. ROXICODONE [Concomitant]
     Active Substance: OXYCODONE HYDROCHLORIDE
     Indication: Pain
  24. MIRALAX [Concomitant]
     Active Substance: POLYETHYLENE GLYCOL 3350
     Indication: Constipation
  25. TRANSDERM SCOP [Concomitant]
     Active Substance: SCOPOLAMINE
  26. Carmol [Concomitant]

REACTIONS (20)
  - Pneumothorax [Recovered/Resolved]
  - Hypothyroidism [Unknown]
  - Pneumothorax [Unknown]
  - Febrile neutropenia [Unknown]
  - Aortic valve incompetence [Unknown]
  - Cancer surgery [Unknown]
  - Pain [Unknown]
  - Pleural effusion [Unknown]
  - Malignant neoplasm progression [Unknown]
  - Osteosarcoma recurrent [Unknown]
  - Diarrhoea [Unknown]
  - Vomiting [Unknown]
  - Nausea [Unknown]
  - Palmar-plantar erythrodysaesthesia syndrome [Unknown]
  - Musculoskeletal pain [Unknown]
  - Back pain [Unknown]
  - Abdominal pain upper [Unknown]
  - Fatigue [Unknown]
  - Synovitis [Unknown]
  - Off label use [Unknown]

NARRATIVE: CASE EVENT DATE: 20240626
